FAERS Safety Report 25590727 (Version 2)
Quarter: 2025Q3

REPORT INFORMATION
  Report Type: Report from Study
  Country: US (occurrence: US)
  Receive Date: 20250722
  Receipt Date: 20250813
  Transmission Date: 20251021
  Serious: Yes (Other)
  Sender: ALEXION PHARMACEUTICALS
  Company Number: US-AstraZeneca-CH-00912379A

PATIENT
  Sex: Male

DRUGS (1)
  1. SOLIRIS [Suspect]
     Active Substance: ECULIZUMAB
     Indication: Myasthenia gravis
     Route: 065

REACTIONS (7)
  - Crohn^s disease [Unknown]
  - Ulcer [Unknown]
  - Asthenia [Unknown]
  - Diarrhoea [Unknown]
  - Weight decreased [Unknown]
  - Anaemia [Unknown]
  - Drug ineffective [Unknown]
